FAERS Safety Report 16024207 (Version 2)
Quarter: 2019Q4

REPORT INFORMATION
  Report Type: Report from Study
  Country: US (occurrence: US)
  Receive Date: 20190301
  Receipt Date: 20191210
  Transmission Date: 20200122
  Serious: Yes (Hospitalization, Other)
  Sender: FDA-Public Use
  Company Number: US-EXELIXIS-CABO-18017311

PATIENT
  Age: 54 Year
  Sex: Male

DRUGS (9)
  1. CABOMETYX [Suspect]
     Active Substance: CABOZANTINIB S-MALATE
     Dosage: 40 MG, QD (2X20 MG TABLETS)
     Route: 048
     Dates: start: 201811
  2. CALCIUM [Concomitant]
     Active Substance: CALCIUM
  3. CABOMETYX [Suspect]
     Active Substance: CABOZANTINIB S-MALATE
     Dosage: 40 MG, QD
     Route: 048
     Dates: start: 20181210
  4. MAGNESIUM [Concomitant]
     Active Substance: MAGNESIUM
  5. CABOMETYX [Suspect]
     Active Substance: CABOZANTINIB S-MALATE
     Indication: RENAL CELL CARCINOMA
     Dosage: 60 MG, QD
     Route: 048
     Dates: start: 201609, end: 201706
  6. CABOMETYX [Suspect]
     Active Substance: CABOZANTINIB S-MALATE
     Dosage: 20 MG, QD
     Route: 048
     Dates: start: 201710
  7. CARVEDILOL. [Concomitant]
     Active Substance: CARVEDILOL
  8. POTASSIUM [Concomitant]
     Active Substance: POTASSIUM
  9. TYLENOL [Concomitant]
     Active Substance: ACETAMINOPHEN

REACTIONS (9)
  - Drug ineffective [Unknown]
  - Fatigue [Unknown]
  - Hypertension [Recovered/Resolved]
  - Generalised oedema [Recovering/Resolving]
  - Diarrhoea [Recovered/Resolved]
  - Malignant neoplasm progression [Not Recovered/Not Resolved]
  - Pleural effusion [Unknown]
  - Dysphonia [Unknown]
  - Headache [Recovered/Resolved]

NARRATIVE: CASE EVENT DATE: 20190219
